FAERS Safety Report 14253627 (Version 3)
Quarter: 2017Q4

REPORT INFORMATION
  Report Type: Report from Study
  Country: None (occurrence: US)
  Receive Date: 20171206
  Receipt Date: 20171229
  Transmission Date: 20180321
  Serious: No
  Sender: FDA-Public Use
  Company Number: US-ABBVIE-17K-163-2180565-00

PATIENT
  Age: 60 Year
  Sex: Female

DRUGS (1)
  1. HUMIRA [Suspect]
     Active Substance: ADALIMUMAB
     Indication: CROHN^S DISEASE
     Route: 058
     Dates: start: 20170302, end: 2017

REACTIONS (3)
  - Fall [Unknown]
  - Dizziness [Not Recovered/Not Resolved]
  - Fracture nonunion [Not Recovered/Not Resolved]

NARRATIVE: CASE EVENT DATE: 2017
